FAERS Safety Report 15230966 (Version 2)
Quarter: 2019Q3

REPORT INFORMATION
  Report Type: Spontaneous
  Country: US (occurrence: US)
  Receive Date: 20180802
  Receipt Date: 20190805
  Transmission Date: 20191004
  Serious: Yes (Other)
  Sender: FDA-Public Use
  Company Number: US-ACCORD-063221

PATIENT
  Age: 59 Year
  Sex: Female

DRUGS (22)
  1. CRESTOR [Concomitant]
     Active Substance: ROSUVASTATIN CALCIUM
     Dosage: STRENGTH: 5MG?1 DAILY
     Dates: start: 201703
  2. MAGNESIUM OXIDE. [Concomitant]
     Active Substance: MAGNESIUM OXIDE
     Dosage: STRENGTH: 400MG ?1 BID
     Dates: start: 20170220
  3. INVOKAMET [Concomitant]
     Active Substance: CANAGLIFLOZIN\METFORMIN HYDROCHLORIDE
     Dosage: STRENGTH: 150 MG?1 BID
     Dates: start: 20170220
  4. METFORMIN [Concomitant]
     Active Substance: METFORMIN HYDROCHLORIDE
  5. CALCIUM PANTOTHENATE/NICOTINAMIDE/PYRIDOXINE HYDROCHLORIDE/RIBOFLAVIN/THIAMINE HYDROCHLORIDE [Concomitant]
  6. VACCINIUM MACROCARPON [Concomitant]
     Active Substance: CRANBERRY
  7. DOCETAXEL ACCORD [Suspect]
     Active Substance: DOCETAXEL
     Indication: INVASIVE DUCTAL BREAST CARCINOMA
     Dosage: EVERY THREE WEEKS
     Dates: start: 20140305, end: 20140626
  8. HERCEPTIN [Suspect]
     Active Substance: TRASTUZUMAB
     Indication: INVASIVE DUCTAL BREAST CARCINOMA
     Dates: start: 20140305, end: 20140626
  9. PERJETA [Suspect]
     Active Substance: PERTUZUMAB
     Indication: INVASIVE DUCTAL BREAST CARCINOMA
     Dates: start: 20140305, end: 20140626
  10. LOSARTAN. [Concomitant]
     Active Substance: LOSARTAN
     Dosage: STRENGTH: 100 MG
  11. PARAPLATIN [Suspect]
     Active Substance: CARBOPLATIN
     Indication: INVASIVE DUCTAL BREAST CARCINOMA
     Dates: start: 20140305, end: 20140626
  12. ERGOCALCIFEROL. [Concomitant]
     Active Substance: ERGOCALCIFEROL
     Dosage: STRENGTH: 5,000 UNIT ?1 BID
     Dates: start: 201702
  13. HYDROCHLOROTHIAZIDE/LOSARTAN POTASSIUM [Concomitant]
     Dosage: STRENGTH: 50/12.5
  14. BYSTOLIC [Concomitant]
     Active Substance: NEBIVOLOL HYDROCHLORIDE
     Dosage: STRENGTH: 5 MG
     Route: 048
     Dates: start: 201411
  15. CARAFATE [Concomitant]
     Active Substance: SUCRALFATE
  16. TRAMADOL. [Concomitant]
     Active Substance: TRAMADOL
     Dosage: STRENGTH: 150 MG?1 BID
     Dates: start: 20170220
  17. PROLIA [Concomitant]
     Active Substance: DENOSUMAB
     Dosage: STRENGTH: 60 MG
     Dates: start: 20160420
  18. CALTRATE WITH VITAMIN D [Concomitant]
     Active Substance: CALCIUM CARBONATE\CHOLECALCIFEROL
  19. DOCETAXEL SANDOZ [Suspect]
     Active Substance: DOCETAXEL
     Indication: INVASIVE DUCTAL BREAST CARCINOMA
  20. VICTOZA [Concomitant]
     Active Substance: LIRAGLUTIDE
  21. TRULICITY [Concomitant]
     Active Substance: DULAGLUTIDE
     Dosage: STRENGTH: 0.75 MG ?1 WKLY
     Dates: start: 201702
  22. LETROZOLE. [Concomitant]
     Active Substance: LETROZOLE
     Dosage: 1 DAILY
     Dates: start: 2015

REACTIONS (1)
  - Alopecia [Not Recovered/Not Resolved]

NARRATIVE: CASE EVENT DATE: 2014
